FAERS Safety Report 25495546 (Version 1)
Quarter: 2025Q2

REPORT INFORMATION
  Report Type: Spontaneous
  Country: GB (occurrence: GB)
  Receive Date: 20250630
  Receipt Date: 20250630
  Transmission Date: 20250717
  Serious: Yes (Death, Life-Threatening)
  Sender: ELI LILLY AND COMPANY
  Company Number: None

PATIENT
  Age: 37 Year
  Sex: Female
  Weight: 80 kg

DRUGS (2)
  1. MOUNJARO [Suspect]
     Active Substance: TIRZEPATIDE
     Indication: Weight control
     Route: 065
     Dates: start: 20240903, end: 20250225
  2. OMEPRAZOLE [Concomitant]
     Active Substance: OMEPRAZOLE
     Indication: Product used for unknown indication

REACTIONS (2)
  - Gastric cancer [Fatal]
  - Abdominal pain upper [Fatal]
